FAERS Safety Report 18564061 (Version 1)
Quarter: 2020Q4

REPORT INFORMATION
  Report Type: Spontaneous
  Country: US (occurrence: US)
  Receive Date: 20201005
  Receipt Date: 20201005
  Transmission Date: 20210114
  Serious: Yes (Death)
  Sender: FDA-Public Use
  Company Number: None

PATIENT
  Age: 6 Decade
  Sex: Male

DRUGS (2)
  1. HYDROXYCHLOROQUINE [Suspect]
     Active Substance: HYDROXYCHLOROQUINE
     Indication: COVID-19
  2. LOPINAVIR-RITONAVIR [Suspect]
     Active Substance: LOPINAVIR\RITONAVIR
     Dosage: ?          OTHER DOSE:400/100MG;?

REACTIONS (5)
  - Pneumonia necrotising [None]
  - Product use in unapproved indication [None]
  - Bronchopulmonary aspergillosis [None]
  - Respiratory failure [None]
  - Haemodynamic instability [None]

NARRATIVE: CASE EVENT DATE: 2020
